FAERS Safety Report 10568397 (Version 1)
Quarter: 2014Q4

REPORT INFORMATION
  Report Type: Spontaneous
  Country: US (occurrence: None)
  Receive Date: 20141024
  Receipt Date: 20141024
  Transmission Date: 20150529
  Serious: No
  Sender: FDA-Public Use
  Company Number: 1424875

PATIENT
  Age: 86 Year
  Sex: Male

DRUGS (2)
  1. PREDNISONE (PREDNISONE) [Suspect]
     Active Substance: PREDNISONE
     Indication: PRODUCT USED FOR UNKNOWN INDICATION
  2. ZELBORAF [Suspect]
     Active Substance: VEMURAFENIB
     Indication: METASTATIC MALIGNANT MELANOMA
     Dosage: 240 MG, 4 IN 12 HR, ORAL
     Route: 048
     Dates: start: 20140605

REACTIONS (14)
  - Rash erythematous [None]
  - Drug ineffective [None]
  - Photosensitivity reaction [None]
  - Dyspnoea [None]
  - Blister [None]
  - Oral mucosal blistering [None]
  - Sunburn [None]
  - Asthenia [None]
  - Swelling face [None]
  - Local swelling [None]
  - Dysphagia [None]
  - Bedridden [None]
  - Pyrexia [None]
  - Oropharyngeal blistering [None]

NARRATIVE: CASE EVENT DATE: 20140611
